FAERS Safety Report 5722602-2 (Version None)
Quarter: 2008Q2

REPORT INFORMATION
  Report Type: 
  Country: None (occurrence: None)
  Receive Date: 20080429
  Receipt Date: 20071009
  Transmission Date: 20081010
  Serious: No
  Sender: FDA-Public Use
  Company Number: US-ASTRAZENECA-2007UW23507

PATIENT
  Age: 63 Year
  Sex: Female
  Weight: 73.9 kg

DRUGS (5)
  1. NEXIUM [Suspect]
     Indication: ILL-DEFINED DISORDER
     Route: 048
  2. LIPITOR [Concomitant]
  3. VERAPAMIL [Concomitant]
  4. ALTACE [Concomitant]
  5. QUINIDINE HCL [Concomitant]

REACTIONS (3)
  - DIARRHOEA [None]
  - ILL-DEFINED DISORDER [None]
  - MALAISE [None]
